FAERS Safety Report 5776811-7 (Version None)
Quarter: 2008Q2

REPORT INFORMATION
  Report Type: 
  Country: None (occurrence: None)
  Receive Date: 20080618
  Receipt Date: 20080519
  Transmission Date: 20081010
  Serious: No
  Sender: FDA-Public Use
  Company Number: US-ASTRAZENECA-2008UW10283

PATIENT
  Age: 37 Year
  Sex: Female

DRUGS (6)
  1. SYMBICORT [Suspect]
     Indication: ASTHMA
     Dosage: 160/4.5 UG
     Route: 055
     Dates: start: 20080409
  2. INTAL [Concomitant]
  3. SINGULAIR [Concomitant]
  4. ALLEGRA [Concomitant]
  5. CRESTOR [Concomitant]
     Route: 048
  6. CARDIZEM [Concomitant]

REACTIONS (3)
  - COUGH [None]
  - DYSPNOEA [None]
  - NASOPHARYNGITIS [None]
